FAERS Safety Report 10259607 (Version 2)
Quarter: 2014Q2

REPORT INFORMATION
  Report Type: Report from Study
  Country: US (occurrence: US)
  Receive Date: 20140625
  Receipt Date: 20140625
  Transmission Date: 20141212
  Serious: Yes (Hospitalization)
  Sender: FDA-Public Use
  Company Number: US-ASTRAZENECA-2014SE32860

PATIENT
  Age: 80 Year
  Sex: Female
  Weight: 72.6 kg

DRUGS (1)
  1. NEXIUM [Suspect]
     Indication: GASTROOESOPHAGEAL REFLUX DISEASE
     Route: 048
     Dates: start: 2010

REACTIONS (3)
  - Reaction to drug excipients [Unknown]
  - Rash pruritic [Recovered/Resolved]
  - Rash [Unknown]
